FAERS Safety Report 9904348 (Version 3)
Quarter: 2014Q2

REPORT INFORMATION
  Report Type: Spontaneous
  Country: US (occurrence: US)
  Receive Date: 20140218
  Receipt Date: 20140509
  Transmission Date: 20141212
  Serious: No
  Sender: FDA-Public Use
  Company Number: US-PFIZER INC-2014010466

PATIENT
  Age: 71 Year
  Sex: Female
  Weight: 40.82 kg

DRUGS (2)
  1. TRIAZOLAM [Suspect]
     Indication: INSOMNIA
     Dosage: 0.25 MG, 2X/DAY
     Dates: start: 201311
  2. ATIVAN [Concomitant]
     Dosage: 1 MG, ONE OR TWO TIMES A DAY

REACTIONS (1)
  - Drug effect incomplete [Not Recovered/Not Resolved]
